FAERS Safety Report 22059308 (Version 3)
Quarter: 2025Q3

REPORT INFORMATION
  Report Type: Report from Study
  Country: US (occurrence: US)
  Receive Date: 20230303
  Receipt Date: 20250710
  Transmission Date: 20251021
  Serious: Yes (Other)
  Sender: JAZZ
  Company Number: US-JAZZ PHARMACEUTICALS-2023-US-001174

PATIENT
  Sex: Female

DRUGS (10)
  1. EPIDIOLEX [Suspect]
     Active Substance: CANNABIDIOL
     Indication: Lennox-Gastaut syndrome
     Dosage: 3 MILLILITER, BID
     Route: 048
  2. KEPPRA [Concomitant]
     Active Substance: LEVETIRACETAM
  3. CLOBAZAM [Concomitant]
     Active Substance: CLOBAZAM
  4. RUFINAMIDE [Concomitant]
     Active Substance: RUFINAMIDE
  5. ESOMEPRAZOLE MAGNESIUM [Concomitant]
     Active Substance: ESOMEPRAZOLE MAGNESIUM
  6. SIMVASTATIN [Concomitant]
     Active Substance: SIMVASTATIN
  7. VIMPAT [Concomitant]
     Active Substance: LACOSAMIDE
  8. SEROQUEL [Concomitant]
     Active Substance: QUETIAPINE FUMARATE
  9. LEVONORGESTREL [Concomitant]
     Active Substance: LEVONORGESTREL
  10. FIBER LAXATIVE [Concomitant]

REACTIONS (3)
  - Hallucination [Unknown]
  - Product dose omission issue [Unknown]
  - Aggression [Unknown]
